FAERS Safety Report 26119940 (Version 1)
Quarter: 2025Q4

REPORT INFORMATION
  Report Type: Spontaneous
  Country: US (occurrence: US)
  Receive Date: 20251204
  Receipt Date: 20251204
  Transmission Date: 20260117
  Serious: Yes (Hospitalization, Other)
  Sender: SANOFI AVENTIS
  Company Number: US-SA-2025SA360619

PATIENT
  Sex: Female
  Weight: 110.91 kg

DRUGS (1)
  1. DUPIXENT [Suspect]
     Active Substance: DUPILUMAB
     Indication: Asthma
     Dosage: 200 MG, QOW
     Route: 058

REACTIONS (6)
  - Loss of consciousness [Unknown]
  - Dyspnoea [Unknown]
  - Product dose omission issue [Unknown]
  - Emotional distress [Unknown]
  - Heart rate increased [Unknown]
  - Anxiety [Unknown]
